FAERS Safety Report 18186265 (Version 2)
Quarter: 2020Q4

REPORT INFORMATION
  Report Type: Report from Study
  Country: JP (occurrence: JP)
  Receive Date: 20200824
  Receipt Date: 20201012
  Transmission Date: 20210113
  Serious: Yes (Other)
  Sender: FDA-Public Use
  Company Number: JP-ALXN-A201912658AA

PATIENT
  Age: 10 Year
  Sex: Male
  Weight: 32 kg

DRUGS (11)
  1. XYZAL [Concomitant]
     Active Substance: LEVOCETIRIZINE DIHYDROCHLORIDE
     Indication: SINUSITIS
  2. XYZAL [Concomitant]
     Active Substance: LEVOCETIRIZINE DIHYDROCHLORIDE
     Indication: RHINITIS ALLERGIC
  3. KIPRES [Concomitant]
     Active Substance: MONTELUKAST SODIUM
     Indication: RHINITIS ALLERGIC
     Dosage: 5 MG, QD
     Route: 048
  4. ALESION [Concomitant]
     Active Substance: EPINASTINE HYDROCHLORIDE
     Indication: SINUSITIS
  5. CALFINA [Concomitant]
     Indication: HYPOPHOSPHATASIA
     Dosage: 0.25 G, QD
     Route: 048
     Dates: start: 20190718, end: 20190813
  6. XYZAL [Concomitant]
     Active Substance: LEVOCETIRIZINE DIHYDROCHLORIDE
     Indication: CONJUNCTIVITIS ALLERGIC
     Dosage: 2.5 MG, QD
     Route: 048
  7. CALCIUM LACTATE [Concomitant]
     Active Substance: CALCIUM LACTATE
     Indication: HYPOPHOSPHATASIA
     Dosage: 1 G, BID
     Route: 048
     Dates: start: 20190718, end: 20190813
  8. SHOKENCHUTO [Concomitant]
     Active Substance: HERBALS
     Indication: ASTHENIA
     Dosage: 2.5 G, BID
     Route: 048
  9. STRENSIQ [Suspect]
     Active Substance: ASFOTASE ALFA
     Indication: HYPOPHOSPHATASIA
     Dosage: 2 MG/KG, Q3W
     Route: 058
     Dates: start: 20190814
  10. ALESION [Concomitant]
     Active Substance: EPINASTINE HYDROCHLORIDE
     Indication: CONJUNCTIVITIS ALLERGIC
     Dosage: UNK
     Route: 065
  11. CIMETIDINE [Concomitant]
     Active Substance: CIMETIDINE
     Indication: HENOCH-SCHONLEIN PURPURA
     Dosage: 200 MG, QD
     Route: 048
     Dates: start: 20180125, end: 20190801

REACTIONS (3)
  - Swelling of eyelid [Recovered/Resolved]
  - Femur fracture [Recovered/Resolved]
  - Infection [Unknown]

NARRATIVE: CASE EVENT DATE: 20190815
